FAERS Safety Report 13745285 (Version 1)
Quarter: 2017Q3

REPORT INFORMATION
  Report Type: Spontaneous
  Country: US (occurrence: US)
  Receive Date: 20170711
  Receipt Date: 20170711
  Transmission Date: 20171127
  Serious: No
  Sender: FDA-Public Use
  Company Number: None

PATIENT
  Age: 57 Year
  Sex: Female

DRUGS (2)
  1. METHOTREXATE SDV 25MG/ML [Suspect]
     Active Substance: METHOTREXATE
     Indication: RHEUMATOID ARTHRITIS
     Route: 058
  2. ACTEMRA [Concomitant]
     Active Substance: TOCILIZUMAB

REACTIONS (5)
  - Swelling [None]
  - Mobility decreased [None]
  - Erythema [None]
  - Blister [None]
  - Skin burning sensation [None]

NARRATIVE: CASE EVENT DATE: 20170710
